FAERS Safety Report 5449278-6 (Version None)
Quarter: 2007Q3

REPORT INFORMATION
  Report Type: 
  Country: None (occurrence: None)
  Receive Date: 20070911
  Receipt Date: 20070905
  Transmission Date: 20080115
  Serious: Yes (Hospitalization)
  Sender: FDA-Public Use
  Company Number: US-GENENTECH-247222

PATIENT
  Sex: Female

DRUGS (3)
  1. LUCENTIS [Suspect]
     Indication: DRUG USE FOR UNKNOWN INDICATION
     Dosage: UNK, UNK
     Dates: start: 20060822
  2. THYROID DRUG NOS [Concomitant]
     Indication: DRUG USE FOR UNKNOWN INDICATION
  3. DIURETIC (UNK INGREDIENTS) [Concomitant]
     Indication: BLOOD PRESSURE

REACTIONS (1)
  - CEREBROVASCULAR ACCIDENT [None]
